FAERS Safety Report 4613945-4 (Version None)
Quarter: 2005Q1

REPORT INFORMATION
  Report Type: 
  Country: None (occurrence: None)
  Receive Date: 20050321
  Receipt Date: 20050310
  Transmission Date: 20050727
  Serious: Yes (Hospitalization)
  Sender: FDA-Public Use
  Company Number: GB-JNJFOC-20050303808

PATIENT
  Sex: Female

DRUGS (7)
  1. ZYDOL [Suspect]
     Indication: DRUG USE FOR UNKNOWN INDICATION
     Route: 049
  2. DIHYDROCODEINE [Concomitant]
  3. VOLTAROL RAPID [Concomitant]
  4. LEMSIP [Concomitant]
  5. LEMSIP [Concomitant]
  6. LEMSIP [Concomitant]
  7. LEMSIP [Concomitant]

REACTIONS (1)
  - HOSPITALISATION [None]
